FAERS Safety Report 8950693 (Version 2)
Quarter: 2012Q4

REPORT INFORMATION
  Report Type: 
  Country: CA (occurrence: CA)
  Receive Date: 20121207
  Receipt Date: 20121226
  Transmission Date: 20130627
  Serious: Yes (Hospitalization, Other)
  Sender: FDA-Public Use
  Company Number: CA-AMGEN-CANSP2012069034

PATIENT
  Age: 63 Year
  Sex: Female

DRUGS (6)
  1. ENBREL [Suspect]
     Indication: RHEUMATOID ARTHRITIS
     Dosage: 50 mg, qwk
     Route: 058
     Dates: start: 200810, end: 201204
  2. METHOTREXATE [Concomitant]
     Indication: RHEUMATOID ARTHRITIS
     Dosage: 25 mg, qwk
     Route: 048
     Dates: start: 1998, end: 201204
  3. CELEBREX [Concomitant]
     Indication: RHEUMATOID ARTHRITIS
     Dosage: 200 mg, bid
     Route: 048
  4. PREDNISONE [Concomitant]
     Indication: RHEUMATOID ARTHRITIS
     Dosage: 10 mg, qd
     Route: 048
     Dates: start: 1998
  5. GABAPENTIN [Concomitant]
     Indication: RHEUMATOID ARTHRITIS
     Dosage: 100 mg, tid
     Route: 048
     Dates: start: 201203
  6. LIPITOR [Concomitant]
     Indication: HYPERLIPIDAEMIA
     Dosage: 10 mg, qd
     Route: 048

REACTIONS (6)
  - Breast cancer [Not Recovered/Not Resolved]
  - Pulmonary embolism [Recovered/Resolved]
  - Foot operation [Recovered/Resolved]
  - Febrile neutropenia [Recovered/Resolved]
  - Impaired healing [Recovered/Resolved]
  - Pain [Recovered/Resolved]
